FAERS Safety Report 18247697 (Version 1)
Quarter: 2020Q3

REPORT INFORMATION
  Report Type: Spontaneous
  Country: JP (occurrence: JP)
  Receive Date: 20200909
  Receipt Date: 20200909
  Transmission Date: 20201103
  Serious: Yes (Death)
  Sender: FDA-Public Use
  Company Number: JP-CELGENEUS-JPN-20200901734

PATIENT
  Age: 75 Year
  Sex: Male

DRUGS (2)
  1. VIDAZA [Suspect]
     Active Substance: AZACITIDINE
     Indication: OFF LABEL USE
  2. VIDAZA [Suspect]
     Active Substance: AZACITIDINE
     Indication: ILEAL ULCER
     Route: 065

REACTIONS (2)
  - Sepsis [Fatal]
  - Neutropenia [Fatal]
